FAERS Safety Report 22322398 (Version 1)
Quarter: 2023Q2

REPORT INFORMATION
  Report Type: Spontaneous
  Country: US (occurrence: None)
  Receive Date: 20230516
  Receipt Date: 20230516
  Transmission Date: 20230722
  Serious: No
  Sender: FDA-Public Use
  Company Number: US-Axsome Therapeutics, Inc.-AXS202301-000102

PATIENT
  Age: 56 Year
  Sex: Male

DRUGS (4)
  1. SUNOSI [Suspect]
     Active Substance: SOLRIAMFETOL
     Indication: Somnolence
     Dosage: 2 HOURS BEFORE NEED TO BE FUNCTIONAL IN THE MORNING
     Route: 065
  2. SUNOSI [Suspect]
     Active Substance: SOLRIAMFETOL
     Indication: Sleep apnoea syndrome
     Route: 065
  3. ARMODAFINIL [Concomitant]
     Active Substance: ARMODAFINIL
     Indication: Product used for unknown indication
     Dosage: UNK
     Route: 065
  4. MODAFINIL [Concomitant]
     Active Substance: MODAFINIL
     Indication: Product used for unknown indication
     Dosage: UNK
     Route: 065

REACTIONS (1)
  - Nervousness [Unknown]
